FAERS Safety Report 8095432-7 (Version None)
Quarter: 2012Q1

REPORT INFORMATION
  Report Type: 
  Country: None (occurrence: None)
  Receive Date: 20120129
  Receipt Date: 20111228
  Transmission Date: 20120608
  Serious: No
  Sender: FDA-Public Use
  Company Number: US-ABBOTT-11P-163-0887631-00

PATIENT
  Sex: Female

DRUGS (1)
  1. HUMIRA [Suspect]
     Indication: RHEUMATOID ARTHRITIS
     Dates: start: 20111214

REACTIONS (7)
  - INJECTION SITE PRURITUS [None]
  - INJECTION SITE PAIN [None]
  - NAUSEA [None]
  - MENSTRUAL DISORDER [None]
  - DIZZINESS [None]
  - INJECTION SITE ERYTHEMA [None]
  - NODULE [None]
